FAERS Safety Report 6479594-0 (Version None)
Quarter: 2009Q4

REPORT INFORMATION
  Report Type: 
  Country: None (occurrence: None)
  Receive Date: 20091208
  Receipt Date: 20091127
  Transmission Date: 20100525
  Serious: Yes (Hospitalization)
  Sender: FDA-Public Use
  Company Number: ES-JNJFOC-20091107902

PATIENT
  Age: 35 Year
  Sex: Female

DRUGS (2)
  1. RISPERIDONE [Suspect]
     Indication: PSYCHOTIC DISORDER
     Route: 048
  2. BENZODIAZEPINE NOS [Concomitant]
     Route: 065

REACTIONS (7)
  - AFFECT LABILITY [None]
  - AFFECTIVE DISORDER [None]
  - COGNITIVE DISORDER [None]
  - DELIRIUM [None]
  - IMPULSIVE BEHAVIOUR [None]
  - PSYCHOTIC DISORDER [None]
  - SPEECH DISORDER [None]
